FAERS Safety Report 14323659 (Version 1)
Quarter: 2017Q4

REPORT INFORMATION
  Report Type: Spontaneous
  Country: CN (occurrence: CN)
  Receive Date: 20171226
  Receipt Date: 20171226
  Transmission Date: 20180321
  Serious: Yes (Other)
  Sender: FDA-Public Use
  Company Number: CN-CIPLA LTD.-2017CN27069

PATIENT

DRUGS (6)
  1. PACLITAXEL. [Suspect]
     Active Substance: PACLITAXEL
     Indication: THYMOMA
     Dosage: UNK, 4 CYCLES
     Route: 065
  2. VINCRISTINE [Suspect]
     Active Substance: VINCRISTINE
     Indication: THYMOMA
     Dosage: UNK, 2 CYCLES
     Route: 065
  3. CISPLATIN. [Suspect]
     Active Substance: CISPLATIN
     Indication: THYMOMA
     Dosage: UNK, 2 CYCLES
     Route: 065
  4. CARBOPLATIN. [Suspect]
     Active Substance: CARBOPLATIN
     Indication: THYMOMA
     Dosage: UNK, 4 CYCLES
     Route: 065
  5. DOXORUBICIN [Suspect]
     Active Substance: DOXORUBICIN
     Indication: THYMOMA
     Dosage: UNK, 2 CYCLES
     Route: 065
  6. CYCLOPHOSPHAMIDE. [Suspect]
     Active Substance: CYCLOPHOSPHAMIDE
     Indication: THYMOMA
     Dosage: UNK, 2 CYCLES
     Route: 065

REACTIONS (2)
  - Disease progression [Unknown]
  - Pleural effusion [Unknown]

NARRATIVE: CASE EVENT DATE: 201505
